FAERS Safety Report 11256395 (Version 3)
Quarter: 2015Q4

REPORT INFORMATION
  Report Type: Spontaneous
  Country: US (occurrence: US)
  Receive Date: 20150709
  Receipt Date: 20151116
  Transmission Date: 20160304
  Serious: Yes (Death, Life-Threatening, Hospitalization, Other)
  Sender: FDA-Public Use
  Company Number: US-JNJFOC-20150706038

PATIENT
  Age: 76 Year
  Sex: Male

DRUGS (12)
  1. MONASCUS PURPUREUS [Concomitant]
     Active Substance: RED YEAST
  2. CINNAMON OIL [Concomitant]
     Active Substance: CINNAMON OIL
     Dosage: 1/2 TSP QD
  3. CALCIUM [Concomitant]
     Active Substance: CALCIUM
  4. COCONUT OIL [Concomitant]
     Active Substance: COCONUT OIL
     Dosage: 1/2 TSP QD
  5. FISH OIL [Concomitant]
     Active Substance: FISH OIL
  6. COENZYME Q10 [Concomitant]
     Active Substance: UBIDECARENONE
     Route: 048
  7. MIRALAX [Concomitant]
     Active Substance: POLYETHYLENE GLYCOL 3350
     Dosage: 1/2 TSP QD
  8. GABAPENTIN. [Concomitant]
     Active Substance: GABAPENTIN
     Route: 048
  9. ALLOPURINOL. [Concomitant]
     Active Substance: ALLOPURINOL
  10. PREVAGEN [Concomitant]
     Active Substance: DIETARY SUPPLEMENT
  11. IMBRUVICA [Suspect]
     Active Substance: IBRUTINIB
     Indication: CHRONIC LYMPHOCYTIC LEUKAEMIA
     Route: 048
     Dates: start: 201403, end: 20150617
  12. VITAMIN B12 [Concomitant]
     Active Substance: CYANOCOBALAMIN
     Route: 048

REACTIONS (11)
  - Encephalomalacia [Unknown]
  - Heart rate decreased [Unknown]
  - Nodule [Unknown]
  - White blood cell count increased [Recovering/Resolving]
  - Pneumonia aspiration [Unknown]
  - Stomatitis [Unknown]
  - Stridor [Unknown]
  - Respiratory failure [Unknown]
  - Hydrocephalus [Unknown]
  - Cerebral haemorrhage [Fatal]
  - Decreased appetite [Unknown]

NARRATIVE: CASE EVENT DATE: 2015
